FAERS Safety Report 13073168 (Version 1)
Quarter: 2016Q4

REPORT INFORMATION
  Report Type: Spontaneous
  Country: US (occurrence: IT)
  Receive Date: 20161229
  Receipt Date: 20161229
  Transmission Date: 20170207
  Serious: Yes (Hospitalization)
  Sender: FDA-Public Use
  Company Number: US-PFIZER INC-2016531726

PATIENT
  Age: 64 Year
  Sex: Female

DRUGS (1)
  1. XELJANZ [Suspect]
     Active Substance: TOFACITINIB CITRATE
     Indication: RHEUMATOID ARTHRITIS
     Dosage: 5 MG, 2X/DAY
     Route: 048

REACTIONS (12)
  - Fall [Unknown]
  - Myalgia [Not Recovered/Not Resolved]
  - Gastritis [Unknown]
  - Pain [Not Recovered/Not Resolved]
  - Food poisoning [Unknown]
  - Flatulence [Unknown]
  - Arthralgia [Not Recovered/Not Resolved]
  - Pelvic fracture [Unknown]
  - Throat irritation [Unknown]
  - Vomiting [Recovered/Resolved]
  - Asthenia [Unknown]
  - Malaise [Not Recovered/Not Resolved]

NARRATIVE: CASE EVENT DATE: 20161219
